FAERS Safety Report 5866061-8 (Version None)
Quarter: 2008Q3

REPORT INFORMATION
  Report Type: 
  Country: None (occurrence: None)
  Receive Date: 20080829
  Receipt Date: 20080826
  Transmission Date: 20090109
  Serious: Yes (Disabling)
  Sender: FDA-Public Use
  Company Number: NZ-BOEHRINGER INGELHEIM GMBH, GERMANY-2008-BP-13436AU

PATIENT
  Sex: Female
  Weight: 87 kg

DRUGS (21)
  1. SPIRIVA [Suspect]
     Route: 055
     Dates: start: 20060729, end: 20080819
  2. PERSANTIN [Suspect]
     Route: 048
  3. STELAZINE [Concomitant]
     Route: 048
  4. PROTHIADEN [Concomitant]
     Route: 048
     Dates: start: 20070704
  5. ASPIRIN/ CALCIUM [Concomitant]
     Route: 048
  6. DIAZEPAM [Concomitant]
     Route: 048
  7. SYMBICORT [Concomitant]
     Route: 055
  8. OMEPRAZOLE [Concomitant]
     Route: 048
  9. DILTIAZEM HCL [Concomitant]
     Route: 048
  10. QUINAPRIL [Concomitant]
     Route: 048
  11. CAL D FORTE [Concomitant]
     Route: 048
  12. FRUSEMIDE [Concomitant]
     Route: 048
  13. ACETAMINOPHEN [Concomitant]
     Route: 048
  14. BEZAFIBRATE [Concomitant]
     Route: 048
  15. MORPHINE [Concomitant]
     Indication: BREAKTHROUGH PAIN
     Route: 048
  16. FERROGRADUMET [Concomitant]
     Route: 048
  17. OSTEO-600 [Concomitant]
     Route: 048
  18. MORPHINE SULFATE [Concomitant]
     Route: 048
  19. SALBUTAMOL [Concomitant]
     Indication: WHEEZING
     Route: 055
  20. SALBUTAMOL [Concomitant]
     Route: 055
  21. MORPHINE SULFATE [Concomitant]
     Route: 048

REACTIONS (6)
  - BRONCHOSPASM [None]
  - COUGH [None]
  - DIPLOPIA [None]
  - DIZZINESS [None]
  - DRY MOUTH [None]
  - DYSPHAGIA [None]
